FAERS Safety Report 6306279-3 (Version None)
Quarter: 2009Q3

REPORT INFORMATION
  Report Type: 
  Country: None (occurrence: None)
  Receive Date: 20090812
  Receipt Date: 20090804
  Transmission Date: 20100115
  Serious: Yes (Hospitalization)
  Sender: FDA-Public Use
  Company Number: PHEH2009US08749

PATIENT
  Sex: Female
  Weight: 108.39 kg

DRUGS (1)
  1. GLEEVEC [Suspect]
     Indication: GASTRIC CANCER
     Dosage: 400 MG QD
     Route: 048
     Dates: start: 20090401

REACTIONS (3)
  - APPENDICECTOMY [None]
  - CHOLECYSTECTOMY [None]
  - COLOSTOMY CLOSURE [None]
